FAERS Safety Report 16245275 (Version 3)
Quarter: 2023Q2

REPORT INFORMATION
  Report Type: Spontaneous
  Country: KR (occurrence: KR)
  Receive Date: 20190426
  Receipt Date: 20230607
  Transmission Date: 20230722
  Serious: Yes (Other)
  Sender: FDA-Public Use
  Company Number: KR-BAYER-2019-082050

PATIENT
  Age: 77 Year
  Sex: Male

DRUGS (1)
  1. EYLEA [Suspect]
     Active Substance: AFLIBERCEPT
     Indication: Neovascular age-related macular degeneration
     Dosage: STRENGTH: 40 MG/ML; UNK; SOLUTION FOR INJECTION

REACTIONS (2)
  - Retinal oedema [Unknown]
  - Inappropriate schedule of product administration [Unknown]
